FAERS Safety Report 14419132 (Version 1)
Quarter: 2018Q1

REPORT INFORMATION
  Report Type: Spontaneous
  Country: CA (occurrence: CA)
  Receive Date: 20180120
  Receipt Date: 20180120
  Transmission Date: 20180509
  Serious: Yes (Hospitalization, Other)
  Sender: FDA-Public Use
  Company Number: None

PATIENT
  Age: 25 Year
  Sex: Male
  Weight: 65 kg

DRUGS (5)
  1. APO- DOXY [Concomitant]
  2. CIRCUMIN [Concomitant]
  3. RAN - CLARITHROMYCIN 500MG [Suspect]
     Active Substance: CLARITHROMYCIN
     Indication: PNEUMONIA
     Dosage: ?          QUANTITY:1 TABLET(S);?
     Route: 048
     Dates: start: 20180116, end: 20180118
  4. WITHANIA SOMNEFERA [Concomitant]
  5. ATAVIN [Concomitant]

REACTIONS (7)
  - Depression [None]
  - Confusional state [None]
  - Dysgeusia [None]
  - Feeling abnormal [None]
  - Mental disorder [None]
  - Suicidal ideation [None]
  - Crying [None]

NARRATIVE: CASE EVENT DATE: 20180117
